FAERS Safety Report 9858437 (Version 1)
Quarter: 2014Q1

REPORT INFORMATION
  Report Type: Spontaneous
  Country: US (occurrence: None)
  Receive Date: 20140129
  Receipt Date: 20140129
  Transmission Date: 20141002
  Serious: Yes (Other)
  Sender: FDA-Public Use
  Company Number: None

PATIENT
  Age: 62 Year
  Sex: Female
  Weight: 55.34 kg

DRUGS (1)
  1. MIRVASO [Suspect]
     Indication: ROSACEA
     Dosage: 0.33%?5 PEASIZE AMOUNTS?1TIME EC DAY?SKIN (FACE)
     Route: 061
     Dates: start: 20131230, end: 20140111

REACTIONS (9)
  - Vasodilatation [None]
  - Neuralgia [None]
  - Vascular rupture [None]
  - Hypotension [None]
  - Epistaxis [None]
  - Flushing [None]
  - Vision blurred [None]
  - Rash macular [None]
  - Chapped lips [None]
